FAERS Safety Report 8572600-9 (Version None)
Quarter: 2012Q3

REPORT INFORMATION
  Report Type: 
  Country: None (occurrence: None)
  Receive Date: 20120806
  Receipt Date: 20120731
  Transmission Date: 20120928
  Serious: Yes (Hospitalization)
  Sender: FDA-Public Use
  Company Number: DE-ROCHE-1095518

PATIENT
  Sex: Female
  Weight: 74 kg

DRUGS (4)
  1. AVASTIN [Suspect]
     Indication: BREAST CANCER
     Dosage: DATE OF LAST DOSE PRIOR TO SAE 24/JUL/2012
     Route: 042
     Dates: start: 20120703
  2. DOXORUBICIN HCL [Suspect]
     Indication: BREAST CANCER
     Dosage: DATE OF LAST DOSE PRIOR TO SAE 24/JUL/20121
     Route: 042
     Dates: start: 20120703
  3. CARBOPLATIN [Suspect]
     Indication: BREAST CANCER
     Dosage: DATE OF LAST DOSE PRIOR TO SAE 24/JUL/2012
     Route: 042
     Dates: start: 20120703
  4. PACLITAXEL [Suspect]
     Indication: BREAST CANCER
     Dosage: DATE OF LAST DOSE PRIOR TO SAE 24/JUL/2012
     Route: 042
     Dates: start: 20120703

REACTIONS (1)
  - MIGRAINE [None]
